FAERS Safety Report 7346658-9 (Version None)
Quarter: 2011Q1

REPORT INFORMATION
  Report Type: 
  Country: None (occurrence: None)
  Receive Date: 20110311
  Receipt Date: 20110302
  Transmission Date: 20110831
  Serious: Yes (Life-Threatening)
  Sender: FDA-Public Use
  Company Number: JP-CELGENEUS-087-21880-11030183

PATIENT
  Sex: Male

DRUGS (19)
  1. REVLIMID [Suspect]
     Dosage: 10 MILLIGRAM
     Route: 048
     Dates: start: 20110131, end: 20110209
  2. FLUCONAZOLE [Concomitant]
     Indication: PROPHYLAXIS
     Dosage: 200 MILLIGRAM
     Route: 048
     Dates: start: 20110119, end: 20110211
  3. BAKTAR [Concomitant]
     Indication: PROPHYLAXIS
     Dosage: 4 TABLET
     Route: 048
     Dates: start: 20110119, end: 20110211
  4. CALONAL [Concomitant]
     Dosage: 1800 MILLIGRAM
     Route: 048
     Dates: start: 20110119, end: 20110211
  5. GASTER [Concomitant]
     Indication: PROPHYLAXIS
     Dosage: 20-40MG
     Route: 041
     Dates: start: 20110218
  6. ZOLOFT [Concomitant]
     Dosage: 50 MILLIGRAM
     Route: 048
     Dates: start: 20110119, end: 20110211
  7. DUROTEP [Concomitant]
     Dosage: 4.2 MILLIGRAM
     Route: 062
     Dates: start: 20110119, end: 20110212
  8. LENADEX [Suspect]
     Dosage: 10 MILLIGRAM
     Route: 048
     Dates: start: 20110131, end: 20110209
  9. HYDROXOCOBALAMIN [Concomitant]
     Indication: POST HERPETIC NEURALGIA
     Dosage: 6 TABLET
     Route: 048
     Dates: start: 20110119, end: 20110211
  10. OMEGACIN [Concomitant]
     Dosage: 1.2 GRAM
     Route: 041
     Dates: start: 20110224
  11. HUMULIN R [Concomitant]
     Indication: POST HERPETIC NEURALGIA
     Dosage: 2
     Route: 058
     Dates: start: 20110221
  12. PRONTMIN [Concomitant]
     Dosage: 10 MILLIGRAM
     Route: 041
     Dates: start: 20110224
  13. LYRICA [Concomitant]
     Indication: POST HERPETIC NEURALGIA
     Dosage: 4 CAPSULE
     Route: 048
     Dates: start: 20110119, end: 20110211
  14. MAGNESIUM OXIDE [Concomitant]
     Dosage: .5 GRAM
     Route: 048
     Dates: start: 20110119, end: 20110211
  15. REVLIMID [Suspect]
     Indication: MULTIPLE MYELOMA
     Dosage: 10 MILLIGRAM
     Route: 048
     Dates: start: 20110119, end: 20110126
  16. LENADEX [Suspect]
     Indication: MULTIPLE MYELOMA
     Dosage: 40 MILLIGRAM
     Route: 048
     Dates: start: 20110119, end: 20110207
  17. FAMOTIDINE D [Concomitant]
     Indication: PROPHYLAXIS
     Dosage: 40 MILLIGRAM
     Route: 048
     Dates: start: 20110119, end: 20110211
  18. BONALON [Concomitant]
     Indication: PROPHYLAXIS
     Dosage: 35 MILLIGRAM
     Route: 048
     Dates: start: 20110119, end: 20110211
  19. MORPHINE HYDROCHLORIDE [Concomitant]
     Dosage: 24-48MG
     Route: 041
     Dates: start: 20110212

REACTIONS (4)
  - PNEUMONIA [None]
  - SEPTIC SHOCK [None]
  - HEPATIC FUNCTION ABNORMAL [None]
  - SINUS BRADYCARDIA [None]
